FAERS Safety Report 19505223 (Version 1)
Quarter: 2021Q3

REPORT INFORMATION
  Report Type: Spontaneous
  Country: US (occurrence: US)
  Receive Date: 20210707
  Receipt Date: 20210707
  Transmission Date: 20211014
  Serious: No
  Sender: FDA-Public Use
  Company Number: None

PATIENT
  Age: 50 Year
  Sex: Female
  Weight: 60.75 kg

DRUGS (3)
  1. MACROBID [Concomitant]
     Active Substance: NITROFURANTOIN\NITROFURANTOIN MONOHYDRATE
  2. LOLOESTERIN [Concomitant]
  3. COPAXONE [Suspect]
     Active Substance: GLATIRAMER ACETATE
     Indication: MULTIPLE SCLEROSIS
     Dosage: ?          QUANTITY:1 INJECTION(S);OTHER FREQUENCY:3 X WEEK;?
     Route: 058
     Dates: start: 20101212, end: 20210707

REACTIONS (4)
  - Injection site discolouration [None]
  - Injection site haemorrhage [None]
  - Injection site swelling [None]
  - Myalgia [None]

NARRATIVE: CASE EVENT DATE: 20210701
